FAERS Safety Report 5063784-8 (Version None)
Quarter: 2006Q3

REPORT INFORMATION
  Report Type: 
  Country: None (occurrence: None)
  Receive Date: 20060727
  Receipt Date: 20060717
  Transmission Date: 20061208
  Serious: Yes (Hospitalization)
  Sender: FDA-Public Use
  Company Number: AU-GILEAD-2006-0009884

PATIENT
  Sex: Male
  Weight: 66 kg

DRUGS (4)
  1. TRUVADA [Suspect]
     Indication: HIV INFECTION
     Route: 048
     Dates: start: 20060704
  2. ATAZANAVIR [Concomitant]
     Indication: HIV INFECTION
     Route: 048
     Dates: start: 20060704
  3. VALTREX [Concomitant]
     Indication: HERPES SIMPLEX
     Route: 048
  4. MIRTAZAPINE [Concomitant]
     Route: 048

REACTIONS (3)
  - CEREBROVASCULAR ACCIDENT [None]
  - HEMIANOPIA [None]
  - VERTEBRAL ARTERY STENOSIS [None]
